FAERS Safety Report 6371275-7 (Version None)
Quarter: 2009Q3

REPORT INFORMATION
  Report Type: 
  Country: None (occurrence: None)
  Receive Date: 20090923
  Receipt Date: 20071008
  Transmission Date: 20100115
  Serious: Yes (Other)
  Sender: FDA-Public Use
  Company Number: US-ASTRAZENECA-2007UW02681

PATIENT
  Age: 566 Month
  Sex: Female
  Weight: 81.6 kg

DRUGS (24)
  1. SEROQUEL [Suspect]
     Indication: SLEEP DISORDER
     Route: 048
     Dates: start: 20000101, end: 20030101
  2. SEROQUEL [Suspect]
     Indication: DEPRESSION
     Route: 048
     Dates: start: 20000101, end: 20030101
  3. SEROQUEL [Suspect]
     Indication: ANXIETY
     Route: 048
     Dates: start: 20000101, end: 20030101
  4. SEROQUEL [Suspect]
     Indication: AGITATION
     Route: 048
     Dates: start: 20000101, end: 20030101
  5. SEROQUEL [Suspect]
     Dosage: 25 TO 100 MG
     Route: 048
     Dates: start: 20050428
  6. SEROQUEL [Suspect]
     Dosage: 25 TO 100 MG
     Route: 048
     Dates: start: 20050428
  7. SEROQUEL [Suspect]
     Dosage: 25 TO 100 MG
     Route: 048
     Dates: start: 20050428
  8. SEROQUEL [Suspect]
     Dosage: 25 TO 100 MG
     Route: 048
     Dates: start: 20050428
  9. BENADRYL [Concomitant]
     Indication: SLEEP DISORDER
     Route: 048
     Dates: start: 19810405
  10. PHENERGAN [Concomitant]
     Indication: NAUSEA
     Dosage: 18-FEB-1996
     Route: 048
  11. PHENERGAN [Concomitant]
     Indication: VOMITING
     Dosage: 18-FEB-1996
     Route: 048
  12. LORTAB [Concomitant]
     Indication: PAIN
     Dosage: 5 MG TO 10 MG, FLUCTUATING
     Route: 048
     Dates: start: 19990126
  13. PREMARIN [Concomitant]
     Dosage: DAILY
     Route: 048
     Dates: start: 20000210
  14. PRILOSEC [Concomitant]
     Route: 048
     Dates: start: 20000210
  15. AMBIEN [Concomitant]
     Route: 048
     Dates: start: 20000212
  16. SYNTHROID [Concomitant]
     Route: 048
     Dates: start: 20010327
  17. NEXIUM [Concomitant]
     Indication: GASTROOESOPHAGEAL REFLUX DISEASE
     Route: 048
     Dates: start: 20010723
  18. PREDNISONE [Concomitant]
     Route: 048
     Dates: start: 20010723
  19. DETROL A [Concomitant]
     Indication: URGE INCONTINENCE
     Route: 048
     Dates: start: 20020808
  20. HYZAAR [Concomitant]
     Indication: BLOOD PRESSURE
     Dosage: 100 MG/25 MG
     Route: 048
     Dates: start: 20030914
  21. ALPRAZOLAM [Concomitant]
     Route: 048
     Dates: start: 20031001
  22. NEURONTIN [Concomitant]
     Route: 048
     Dates: start: 20040623
  23. ATIVAN [Concomitant]
     Indication: ANXIETY
     Route: 048
     Dates: start: 20040725
  24. RESTORIL [Concomitant]
     Indication: INSOMNIA
     Route: 048
     Dates: start: 20040428

REACTIONS (4)
  - DIABETES MELLITUS [None]
  - GLUCOSE TOLERANCE IMPAIRED [None]
  - HYPERGLYCAEMIA [None]
  - RENAL FAILURE [None]
